FAERS Safety Report 5011510-0 (Version None)
Quarter: 2006Q2

REPORT INFORMATION
  Report Type: 
  Country: None (occurrence: None)
  Receive Date: 20060524
  Receipt Date: 20060515
  Transmission Date: 20061013
  Serious: Yes (Death)
  Sender: FDA-Public Use
  Company Number: 2006-05-1258

PATIENT
  Sex: Female

DRUGS (4)
  1. IMDUR [Suspect]
     Dosage: ORAL
     Route: 048
  2. CLARINEX [Suspect]
  3. PROVENTIL [Suspect]
  4. NASONEX [Suspect]

REACTIONS (1)
  - DEATH [None]
